FAERS Safety Report 5876435-7 (Version None)
Quarter: 2008Q3

REPORT INFORMATION
  Report Type: 
  Country: None (occurrence: None)
  Receive Date: 20080910
  Receipt Date: 20080902
  Transmission Date: 20090109
  Serious: Yes (Hospitalization)
  Sender: FDA-Public Use
  Company Number: ES-WATSON-2008-05302

PATIENT
  Age: 20 Year
  Sex: Female

DRUGS (3)
  1. DIPHENHYDRAMINE (WATSON LABORATORIES) [Suspect]
     Indication: SUICIDE ATTEMPT
     Dosage: 16 X 50MG TABLETS (800MG)
     Route: 048
     Dates: start: 20080101, end: 20080101
  2. BARBITURATES [Concomitant]
     Indication: DRUG USE FOR UNKNOWN INDICATION
     Route: 065
  3. BENZODIAZEPINE DERIVATIVES [Concomitant]
     Indication: DRUG USE FOR UNKNOWN INDICATION
     Dosage: UNK

REACTIONS (10)
  - ANTICHOLINERGIC SYNDROME [None]
  - DISORIENTATION [None]
  - GAIT DISTURBANCE [None]
  - HALLUCINATION, AUDITORY [None]
  - MUCOSAL DRYNESS [None]
  - MYDRIASIS [None]
  - POSITIVE ROMBERGISM [None]
  - TACHYCARDIA [None]
  - URINARY RETENTION [None]
  - VASODILATATION [None]
